FAERS Safety Report 7496780-1 (Version None)
Quarter: 2011Q2

REPORT INFORMATION
  Report Type: 
  Country: None (occurrence: None)
  Receive Date: 20110523
  Receipt Date: 20110519
  Transmission Date: 20111010
  Serious: Yes (Hospitalization)
  Sender: FDA-Public Use
  Company Number: B0720267A

PATIENT
  Sex: Female

DRUGS (9)
  1. LOVENOX [Suspect]
     Indication: PULMONARY EMBOLISM
     Dosage: .5ML TWICE PER DAY
     Route: 058
     Dates: start: 20101121
  2. OMEPRAZOLE [Concomitant]
     Route: 065
  3. ACETAMINOPHEN [Concomitant]
     Route: 065
  4. PAROXETINE HCL [Suspect]
     Dosage: 20MG PER DAY
     Route: 048
  5. PREVISCAN [Suspect]
     Indication: PULMONARY EMBOLISM
     Route: 048
     Dates: start: 20101207, end: 20101213
  6. LACRYVISC [Concomitant]
     Route: 065
  7. CELLUVISC [Concomitant]
     Route: 065
  8. AUGMENTIN [Suspect]
     Dosage: 1G TWICE PER DAY
     Route: 048
     Dates: start: 20101112, end: 20110120
  9. MOTILIUM [Concomitant]
     Route: 065

REACTIONS (4)
  - SUBCUTANEOUS HAEMATOMA [None]
  - ANAEMIA [None]
  - INTERNATIONAL NORMALISED RATIO INCREASED [None]
  - MUSCLE HAEMORRHAGE [None]
